FAERS Safety Report 6136461-X (Version None)
Quarter: 2009Q1

REPORT INFORMATION
  Report Type: 
  Country: None (occurrence: None)
  Receive Date: 20090330
  Receipt Date: 20090319
  Transmission Date: 20090719
  Serious: Yes (Other)
  Sender: FDA-Public Use
  Company Number: US-WYE-H08649509

PATIENT
  Sex: Male

DRUGS (1)
  1. BENEFIX [Suspect]
     Indication: FACTOR IX DEFICIENCY
     Dosage: 200 IU PRN
     Route: 042
     Dates: start: 20050101, end: 20090301

REACTIONS (1)
  - FACTOR IX INHIBITION [None]
